FAERS Safety Report 23094879 (Version 4)
Quarter: 2024Q1

REPORT INFORMATION
  Report Type: Spontaneous
  Country: JP (occurrence: JP)
  Receive Date: 20231023
  Receipt Date: 20240328
  Transmission Date: 20240409
  Serious: Yes (Hospitalization, Other)
  Sender: FDA-Public Use
  Company Number: JP-ABBVIE-5435104

PATIENT
  Age: 79 Year
  Sex: Female

DRUGS (7)
  1. GLECAPREVIR\PIBRENTASVIR [Suspect]
     Active Substance: GLECAPREVIR\PIBRENTASVIR
     Indication: Chronic hepatitis C
     Dosage: 3 TABLET
     Route: 048
     Dates: start: 20230601, end: 20230726
  2. URSODIOL [Concomitant]
     Active Substance: URSODIOL
     Indication: Chronic hepatitis C
     Dosage: TIME INTERVAL: 0.33333333 DAYS: 300 MILLIGRAM?FORM STRENGTH: 100 MG, STOP DATE TEXT: AROUND AUG-2023
     Route: 048
     Dates: end: 202308
  3. ETIZOLAM [Concomitant]
     Active Substance: ETIZOLAM
     Indication: Insomnia
     Dosage: - FORM STRENGTH: 0.5 MILLIGRAM?FREQUENCY TEXT: PRN, STOP DATE TEXT: AROUND AUG-2023
     Route: 048
     Dates: end: 202308
  4. SODIUM FERROUS CITRATE [Concomitant]
     Active Substance: SODIUM FERROUS CITRATE
     Indication: Iron deficiency anaemia
     Dosage: FORM STRENGTH: 50 MILLIGRAM
     Route: 048
     Dates: start: 20230629, end: 20230726
  5. AMLODIPINE BESYLATE [Concomitant]
     Active Substance: AMLODIPINE BESYLATE
     Indication: Hypertension
     Dosage: FORM STRENGTH: 2.5 MILLIGRAM
     Route: 048
  6. FURSULTIAMINE HYDROCHLORIDE [Concomitant]
     Active Substance: FURSULTIAMINE HYDROCHLORIDE
     Indication: Vitamin B1 deficiency
     Dosage: FORM STRENGTH: 25 MILLIGRAM
     Route: 048
  7. SHAKUYAKUKANZOTO [Concomitant]
     Active Substance: HERBALS
     Indication: Myalgia
     Dosage: 1 SACHET?EXTRACT STOP DATE TEXT: AROUND AUG-2023
     Dates: end: 202308

REACTIONS (5)
  - Atrial fibrillation [Not Recovered/Not Resolved]
  - Pruritus [Recovering/Resolving]
  - Cardiac failure congestive [Recovering/Resolving]
  - Malaise [Unknown]
  - Pleural effusion [Unknown]

NARRATIVE: CASE EVENT DATE: 20230601
